FAERS Safety Report 5811355-5 (Version None)
Quarter: 2008Q3

REPORT INFORMATION
  Report Type: 
  Country: None (occurrence: None)
  Receive Date: 20080716
  Receipt Date: 20080709
  Transmission Date: 20090109
  Serious: Yes (Death, Hospitalization)
  Sender: FDA-Public Use
  Company Number: BE-ABBOTT-08P-013-0462022-00

PATIENT
  Age: 27 Year
  Sex: Female

DRUGS (1)
  1. DEPAKENE [Suspect]
     Indication: EPILEPSY
     Route: 042
     Dates: start: 20080101

REACTIONS (2)
  - BLOOD POTASSIUM INCREASED [None]
  - CARDIAC ARREST [None]
